FAERS Safety Report 22353365 (Version 1)
Quarter: 2023Q2

REPORT INFORMATION
  Report Type: Spontaneous
  Country: US (occurrence: US)
  Receive Date: 20230523
  Receipt Date: 20230523
  Transmission Date: 20230721
  Serious: Yes (Death)
  Sender: FDA-Public Use
  Company Number: US-CTI BIOPHARMA-2023US03635

PATIENT

DRUGS (17)
  1. VONJO [Suspect]
     Active Substance: PACRITINIB
     Indication: Leukaemia
     Dosage: 100 MG, BID
  2. NOVOLOG [Concomitant]
     Active Substance: INSULIN ASPART
  3. ONDANSETRON [Concomitant]
     Active Substance: ONDANSETRON
  4. SUBOXONE [Concomitant]
     Active Substance: BUPRENORPHINE HYDROCHLORIDE\NALOXONE HYDROCHLORIDE
  5. ZOLPIDEM [Concomitant]
     Active Substance: ZOLPIDEM TARTRATE
  6. ACETAMINOPHEN [Concomitant]
     Active Substance: ACETAMINOPHEN
  7. ACYCLOVIR [Concomitant]
     Active Substance: ACYCLOVIR
  8. BACLOFEN [Concomitant]
     Active Substance: BACLOFEN
  9. BUDESONIDE [Concomitant]
     Active Substance: BUDESONIDE
  10. CRESEMBA [Concomitant]
     Active Substance: ISAVUCONAZONIUM SULFATE
  11. NICOTINE POLACRILEX [Concomitant]
     Active Substance: NICOTINE
  12. DOCUSATE [Concomitant]
     Active Substance: DOCUSATE
  13. DULOXETINE [Concomitant]
     Active Substance: DULOXETINE
  14. FOLIC ACID [Concomitant]
     Active Substance: FOLIC ACID
  15. LEVOFLOXACIN [Concomitant]
     Active Substance: LEVOFLOXACIN
  16. LISINOPRIL [Concomitant]
     Active Substance: LISINOPRIL
  17. METFORMIN [Concomitant]
     Active Substance: METFORMIN HYDROCHLORIDE

REACTIONS (1)
  - Death [Fatal]

NARRATIVE: CASE EVENT DATE: 20230417
